FAERS Safety Report 11664228 (Version 2)
Quarter: 2015Q4

REPORT INFORMATION
  Report Type: Spontaneous
  Country: BR (occurrence: BR)
  Receive Date: 20151027
  Receipt Date: 20151110
  Transmission Date: 20160304
  Serious: Yes (Disabling, Other)
  Sender: FDA-Public Use
  Company Number: BR-ELI_LILLY_AND_COMPANY-BR201510005160

PATIENT
  Sex: Female
  Weight: 60 kg

DRUGS (5)
  1. LIPITOR [Concomitant]
     Active Substance: ATORVASTATIN CALCIUM
     Dosage: UNK, UNKNOWN
     Route: 065
  2. LOSARTAN POTASSSIUM [Concomitant]
     Indication: BLOOD PRESSURE MEASUREMENT
     Dosage: UNK, UNKNOWN
     Route: 065
  3. LANTUS [Concomitant]
     Active Substance: INSULIN GLARGINE
     Dosage: UNK, UNKNOWN
     Route: 065
  4. FENOFIBRATO [Concomitant]
     Active Substance: FENOFIBRATE
     Dosage: UNK, UNKNOWN
     Route: 065
  5. HUMALOG [Suspect]
     Active Substance: INSULIN LISPRO
     Indication: PRODUCT USED FOR UNKNOWN INDICATION
     Dosage: 12 DF, TID
     Route: 065

REACTIONS (4)
  - Phantom pain [Unknown]
  - Diabetes mellitus [Unknown]
  - Blindness [Not Recovered/Not Resolved]
  - Headache [Unknown]
